FAERS Safety Report 5893682-9 (Version None)
Quarter: 2008Q3

REPORT INFORMATION
  Report Type: 
  Country: None (occurrence: None)
  Receive Date: 20080923
  Receipt Date: 20080118
  Transmission Date: 20090109
  Serious: No
  Sender: FDA-Public Use
  Company Number: US-ASTRAZENECA-2007UW23761

PATIENT
  Age: 419 Month
  Sex: Female
  Weight: 90.9 kg

DRUGS (6)
  1. SEROQUEL [Suspect]
     Indication: SCHIZOPHRENIA
     Route: 048
     Dates: start: 20030101, end: 20050101
  2. ABILIFY [Concomitant]
     Dates: start: 20060101, end: 20080101
  3. GEODON [Concomitant]
     Dates: start: 20060101, end: 20080101
  4. THORAZINE [Concomitant]
     Dates: start: 19820101, end: 19920101
  5. LITHIUM CARBONATE [Concomitant]
     Dates: start: 19820101, end: 19920101
  6. LITHIUM CARBONATE [Concomitant]
     Dates: start: 20060101, end: 20080101

REACTIONS (2)
  - DIABETES MELLITUS [None]
  - OBESITY [None]
